FAERS Safety Report 17484588 (Version 1)
Quarter: 2020Q1

REPORT INFORMATION
  Report Type: Spontaneous
  Country: US (occurrence: US)
  Receive Date: 20200302
  Receipt Date: 20200302
  Transmission Date: 20200409
  Serious: No
  Sender: FDA-Public Use
  Company Number: US-SUNOVION-2020SUN000541

PATIENT
  Age: 101 Year
  Sex: Female

DRUGS (1)
  1. BROVANA [Suspect]
     Active Substance: ARFORMOTEROL TARTRATE
     Indication: PRODUCT USED FOR UNKNOWN INDICATION
     Dosage: 15 ?G/2 ML, BID
     Route: 055
     Dates: end: 202002

REACTIONS (2)
  - Therapy cessation [Unknown]
  - Aphasia [Unknown]

NARRATIVE: CASE EVENT DATE: 202002
